FAERS Safety Report 15294985 (Version 1)
Quarter: 2018Q3

REPORT INFORMATION
  Report Type: Spontaneous
  Country: US (occurrence: US)
  Receive Date: 20180820
  Receipt Date: 20180820
  Transmission Date: 20181010
  Serious: No
  Sender: FDA-Public Use
  Company Number: US-PFIZER INC-2018327844

PATIENT
  Age: 66 Year
  Sex: Female

DRUGS (1)
  1. IBRANCE [Suspect]
     Active Substance: PALBOCICLIB
     Indication: METASTATIC NEOPLASM
     Dosage: UNK

REACTIONS (4)
  - Fatigue [Unknown]
  - Neoplasm progression [Recovering/Resolving]
  - Sciatica [Unknown]
  - Immune system disorder [Unknown]

NARRATIVE: CASE EVENT DATE: 20131101
